FAERS Safety Report 8410397-3 (Version None)
Quarter: 2012Q2

REPORT INFORMATION
  Report Type: 
  Country: None (occurrence: None)
  Receive Date: 20120529
  Receipt Date: 20120514
  Transmission Date: 20120825
  Serious: Yes (Other)
  Sender: FDA-Public Use
  Company Number: 2012MA006120

PATIENT
  Age: 23 Year
  Sex: Male

DRUGS (3)
  1. ALPRAZOLAM [Suspect]
     Dosage: 42 TABS
  2. HYDROCODONE BITARTRATE + ACETAMINOPHEN [Suspect]
  3. RISPERIDONE [Suspect]

REACTIONS (5)
  - INCORRECT DOSE ADMINISTERED [None]
  - ATRIOVENTRICULAR BLOCK SECOND DEGREE [None]
  - SELF-MEDICATION [None]
  - SINUS BRADYCARDIA [None]
  - REFUSAL OF TREATMENT BY PATIENT [None]
